FAERS Safety Report 7108549-8 (Version None)
Quarter: 2010Q4

REPORT INFORMATION
  Report Type: 
  Country: None (occurrence: None)
  Receive Date: 20101117
  Receipt Date: 20101020
  Transmission Date: 20110411
  Serious: Yes (Other)
  Sender: FDA-Public Use
  Company Number: A0878575A

PATIENT
  Sex: Male
  Weight: 96.8 kg

DRUGS (1)
  1. VOTRIENT [Suspect]
     Dosage: 800MG PER DAY
     Route: 048
     Dates: start: 20100818, end: 20101001

REACTIONS (3)
  - DECREASED APPETITE [None]
  - FATIGUE [None]
  - TUMOUR HAEMORRHAGE [None]
